FAERS Safety Report 6815786-6 (Version None)
Quarter: 2010Q3

REPORT INFORMATION
  Report Type: 
  Country: None (occurrence: None)
  Receive Date: 20100705
  Receipt Date: 20100628
  Transmission Date: 20110219
  Serious: Yes (Other)
  Sender: FDA-Public Use
  Company Number: US-MERCK-0908USA03737

PATIENT
  Age: 71 Year
  Sex: Female
  Weight: 87 kg

DRUGS (3)
  1. FOSAMAX [Suspect]
     Indication: OSTEOPENIA
     Route: 048
     Dates: start: 20030501, end: 20090514
  2. FOSAMAX [Suspect]
     Indication: OSTEOPOROSIS
     Route: 048
     Dates: start: 20030501, end: 20090514
  3. COMBIVENT [Concomitant]
     Indication: CHRONIC OBSTRUCTIVE PULMONARY DISEASE
     Route: 055
     Dates: start: 19990101

REACTIONS (12)
  - ARTHROPATHY [None]
  - CATARACT [None]
  - DEVICE FAILURE [None]
  - GINGIVAL BLEEDING [None]
  - GINGIVAL DISORDER [None]
  - GINGIVAL SWELLING [None]
  - IMPLANT SITE INFECTION [None]
  - ORAL INFECTION [None]
  - OSTEOMYELITIS [None]
  - OSTEONECROSIS OF JAW [None]
  - TOOTH DISORDER [None]
  - UTERINE STENOSIS [None]
